FAERS Safety Report 9448135 (Version 2)
Quarter: 2013Q4

REPORT INFORMATION
  Report Type: Spontaneous
  Country: US (occurrence: US)
  Receive Date: 20130808
  Receipt Date: 20131220
  Transmission Date: 20140711
  Serious: Yes (Hospitalization, Other)
  Sender: FDA-Public Use
  Company Number: US-SANOFI-AVENTIS-2013SA079105

PATIENT
  Age: 58 Year
  Sex: Female
  Weight: 131.08 kg

DRUGS (1)
  1. ZALTRAP [Suspect]
     Indication: COLON CANCER
     Dosage: DOSE 543 MG EVERY 2 WEEK
     Route: 042
     Dates: start: 20130701, end: 20130715

REACTIONS (2)
  - Infusion related reaction [Recovered/Resolved]
  - Convulsion [Recovered/Resolved]
